FAERS Safety Report 15587399 (Version 1)
Quarter: 2018Q4

REPORT INFORMATION
  Report Type: Spontaneous
  Country: GR (occurrence: GR)
  Receive Date: 20181105
  Receipt Date: 20181105
  Transmission Date: 20190205
  Serious: Yes (Other)
  Sender: FDA-Public Use
  Company Number: GR-MYLANLABS-2018M1082295

PATIENT
  Age: 25 Year
  Sex: Female

DRUGS (5)
  1. CARVEDILOL. [Suspect]
     Active Substance: CARVEDILOL
     Indication: CARDIAC FAILURE
     Dosage: 12.5 MG BID
     Route: 048
     Dates: start: 2013
  2. RAMIPRIL. [Concomitant]
     Active Substance: RAMIPRIL
     Indication: CARDIAC FAILURE
     Dosage: 5 MG BID
     Route: 048
     Dates: start: 2013
  3. CARVEDILOL. [Suspect]
     Active Substance: CARVEDILOL
     Dosage: 25 MG BID
     Route: 048
     Dates: start: 2013
  4. EPLERENONE. [Concomitant]
     Active Substance: EPLERENONE
     Indication: CARDIAC FAILURE
     Dosage: 25 MG OD
     Route: 048
     Dates: start: 2013
  5. RAMIPRIL. [Concomitant]
     Active Substance: RAMIPRIL
     Dosage: 5 MG, QD
     Route: 048
     Dates: start: 2013

REACTIONS (1)
  - Viral myocarditis [Recovered/Resolved with Sequelae]

NARRATIVE: CASE EVENT DATE: 2013
